FAERS Safety Report 5607011-9 (Version None)
Quarter: 2008Q1

REPORT INFORMATION
  Report Type: 
  Country: None (occurrence: None)
  Receive Date: 20080111
  Receipt Date: 20070220
  Transmission Date: 20080703
  Serious: Yes (Other)
  Sender: FDA-Public Use
  Company Number: HQWYE369722JUL04

PATIENT
  Age: 59 Year
  Sex: Female
  Weight: 70.37 kg

DRUGS (6)
  1. PREMPRO [Suspect]
     Indication: BONE DENSITY DECREASED
     Dosage: 6.25MG/2.5MG DAILY, ORAL
     Route: 048
     Dates: start: 19970101, end: 20030101
  2. ACTIVELLA [Suspect]
  3. ESTROGENS (ESTROGENS, ) [Suspect]
  4. MEDROXYPROGESTERONE ACETATE [Suspect]
  5. PREMARIN [Suspect]
  6. PROVERA [Suspect]

REACTIONS (1)
  - BREAST CANCER [None]
